FAERS Safety Report 5279989-7 (Version None)
Quarter: 2007Q1

REPORT INFORMATION
  Report Type: 
  Country: None (occurrence: None)
  Receive Date: 20070329
  Receipt Date: 20070319
  Transmission Date: 20070707
  Serious: Yes (Other)
  Sender: FDA-Public Use
  Company Number: FR-JNJFOC-20070305068

PATIENT
  Age: 42 Year
  Sex: Male

DRUGS (1)
  1. CONCERTA [Suspect]
     Indication: OFF LABEL USE
     Route: 048

REACTIONS (2)
  - DRUG DEPENDENCE [None]
  - OFF LABEL USE [None]
